FAERS Safety Report 11925052 (Version 2)
Quarter: 2016Q3

REPORT INFORMATION
  Report Type: Spontaneous
  Country: GB (occurrence: GB)
  Receive Date: 20160118
  Receipt Date: 20160826
  Transmission Date: 20161109
  Serious: Yes (Congenital Anomaly, Other)
  Sender: FDA-Public Use
  Company Number: GB-BRISTOL-MYERS SQUIBB COMPANY-10765196

PATIENT
  Age: 1 Day
  Sex: Male

DRUGS (3)
  1. ZERIT [Suspect]
     Active Substance: STAVUDINE
     Indication: PRODUCT USED FOR UNKNOWN INDICATION
     Dosage: 80 MG, UNK
     Route: 064
     Dates: start: 199812, end: 20000927
  2. NEVIRAPINE. [Suspect]
     Active Substance: NEVIRAPINE
     Indication: PRODUCT USED FOR UNKNOWN INDICATION
     Dosage: 400 MG, UNK
     Route: 064
     Dates: start: 199911, end: 20000927
  3. VIDEX [Suspect]
     Active Substance: DIDANOSINE
     Indication: PRODUCT USED FOR UNKNOWN INDICATION
     Dosage: 400 MG, UNK
     Route: 064
     Dates: start: 199812, end: 20000927

REACTIONS (3)
  - Premature baby [Unknown]
  - Foetal exposure during pregnancy [Recovered/Resolved]
  - Ependymoma [Unknown]

NARRATIVE: CASE EVENT DATE: 200009
